FAERS Safety Report 5597084-4 (Version None)
Quarter: 2008Q1

REPORT INFORMATION
  Report Type: 
  Country: None (occurrence: None)
  Receive Date: 20080121
  Receipt Date: 20080111
  Transmission Date: 20080703
  Serious: Yes (Other)
  Sender: FDA-Public Use
  Company Number: PHEH2008US00448

PATIENT
  Age: 80 Year
  Sex: Male

DRUGS (1)
  1. EXELON PATCH [Suspect]
     Indication: DEMENTIA ALZHEIMER'S TYPE
     Dosage: 4.6 MG, QD
     Route: 062
     Dates: start: 20071228, end: 20071229

REACTIONS (9)
  - AMNESIA [None]
  - ANOREXIA [None]
  - CONFUSIONAL STATE [None]
  - DECREASED INTEREST [None]
  - GAIT DISTURBANCE [None]
  - HYPERSOMNIA [None]
  - MENTAL STATUS CHANGES [None]
  - MOOD ALTERED [None]
  - NAUSEA [None]
